FAERS Safety Report 7222161-1 (Version None)
Quarter: 2011Q1

REPORT INFORMATION
  Report Type: 
  Country: None (occurrence: None)
  Receive Date: 20110104
  Receipt Date: 20101224
  Transmission Date: 20110831
  Serious: Yes (Hospitalization, Other)
  Sender: FDA-Public Use
  Company Number: DSJ-2010-21048

PATIENT
  Age: 45 Year
  Sex: Male
  Weight: 83.7 kg

DRUGS (15)
  1. VOLTAREN [Suspect]
     Indication: PYREXIA
     Dosage: 50 MG (50 MG, 1 IN 1 D), RECTAL
     Route: 054
     Dates: start: 20100105, end: 20100105
  2. FENTANYL (FENTANYL) (INJECTION) (FENTANYL) [Concomitant]
  3. OMEPRAL (OMEPRAZOLE) (INJECTION) (OMEPRAZOLE) [Concomitant]
  4. ALBUMIN (ALBUMIN) (INJECTION) (ALBUMIN) [Concomitant]
  5. DIPRIVAN (PROPOFOL) (INJECTION) (PROPOFOL) [Concomitant]
  6. PANTOL (DEXPANTHENOL) (INJECTION) (DEXPANTHENOL) [Concomitant]
  7. CALBLOCK (AZELNIDIPINE) (TABLET) (AZELNIDIPINE) [Suspect]
     Indication: HYPERTENSION
     Dosage: 16 MG (16 MG, 1 IN 1 D), NASAL
     Route: 045
     Dates: start: 20100103, end: 20100105
  8. CALBLOCK (AZELNIDIPINE) (TABLET) (AZELNIDIPINE) [Suspect]
     Indication: SUBDURAL HAEMATOMA
     Dosage: 16 MG (16 MG, 1 IN 1 D), NASAL
     Route: 045
     Dates: start: 20100103, end: 20100105
  9. CALBLOCK (AZELNIDIPINE) (TABLET) (AZELNIDIPINE) [Suspect]
     Indication: SUBARACHNOID HAEMORRHAGE
     Dosage: 16 MG (16 MG, 1 IN 1 D), NASAL
     Route: 045
     Dates: start: 20100103, end: 20100105
  10. CEFAMEZIN (CEFAZOLIN SODIUM) (INJECTION) (CEFAZOLIN SODIUM) [Concomitant]
  11. PHENOBAL (PHENOBARBITAL) (INJECTION) (PHENOBARBITAL) [Concomitant]
  12. LASIX (FUROSEMIDE) (INJECTION) (FUROSEMIDE) [Concomitant]
  13. OLMESARTAN MEDOXOMIL [Suspect]
     Indication: HYPERTENSION
     Dosage: 20 MG (20 MG, 1 IN 1 D), NASAL
     Route: 045
     Dates: start: 20100103, end: 20100105
  14. OLMESARTAN MEDOXOMIL [Suspect]
     Indication: SUBARACHNOID HAEMORRHAGE
     Dosage: 20 MG (20 MG, 1 IN 1 D), NASAL
     Route: 045
     Dates: start: 20100103, end: 20100105
  15. OLMESARTAN MEDOXOMIL [Suspect]
     Indication: SUBDURAL HAEMATOMA
     Dosage: 20 MG (20 MG, 1 IN 1 D), NASAL
     Route: 045
     Dates: start: 20100103, end: 20100105

REACTIONS (5)
  - DRUG INTERACTION [None]
  - PYREXIA [None]
  - HAEMODIALYSIS [None]
  - SHOCK [None]
  - RENAL FAILURE ACUTE [None]
